FAERS Safety Report 12400782 (Version 1)
Quarter: 2016Q2

REPORT INFORMATION
  Report Type: Spontaneous
  Country: US (occurrence: None)
  Receive Date: 20160524
  Receipt Date: 20160524
  Transmission Date: 20160815
  Serious: No
  Sender: FDA-Public Use
  Company Number: None

PATIENT
  Age: 68 Year
  Sex: Female

DRUGS (9)
  1. KEFLEX [Concomitant]
     Active Substance: CEPHALEXIN
  2. XANAX [Concomitant]
     Active Substance: ALPRAZOLAM
  3. FASLODEX [Concomitant]
     Active Substance: FULVESTRANT
  4. ALBUTEROL. [Concomitant]
     Active Substance: ALBUTEROL
  5. SYNTHROID [Concomitant]
     Active Substance: LEVOTHYROXINE SODIUM
  6. IBRANCE [Suspect]
     Active Substance: PALBOCICLIB
     Indication: BREAST CANCER
     Dosage: 125MG 21 DAYS ON 7 OFF QD PO
     Route: 048
     Dates: start: 20160305
  7. TRIAMINIC CHILDRENS NIGHT TIME COLD AND COUGH [Concomitant]
     Active Substance: DIPHENHYDRAMINE HYDROCHLORIDE\PHENYLEPHRINE HYDROCHLORIDE
  8. POTASSIUM [Concomitant]
     Active Substance: POTASSIUM
  9. VITAMIN D3 [Concomitant]
     Active Substance: CHOLECALCIFEROL

REACTIONS (2)
  - Acne [None]
  - Localised infection [None]

NARRATIVE: CASE EVENT DATE: 20160425
